FAERS Safety Report 8536838-9 (Version None)
Quarter: 2012Q3

REPORT INFORMATION
  Report Type: 
  Country: None (occurrence: None)
  Receive Date: 20120725
  Receipt Date: 20120716
  Transmission Date: 20120928
  Serious: Yes (Other)
  Sender: FDA-Public Use
  Company Number: CA-ELI_LILLY_AND_COMPANY-CA201207005550

PATIENT
  Sex: Female

DRUGS (3)
  1. HUMULIN N [Suspect]
     Dosage: UNK
     Dates: start: 20020101
  2. METFORMIN HYDROCHLORIDE [Concomitant]
  3. HUMULIN R [Suspect]
     Dosage: UNK
     Dates: start: 20020101

REACTIONS (3)
  - POLYARTHRITIS [None]
  - EYE HAEMORRHAGE [None]
  - WEIGHT DECREASED [None]
